FAERS Safety Report 7263984-2 (Version None)
Quarter: 2011Q1

REPORT INFORMATION
  Report Type: 
  Country: None (occurrence: None)
  Receive Date: 20110130
  Receipt Date: 20101026
  Transmission Date: 20110831
  Serious: No
  Sender: FDA-Public Use
  Company Number: US-ABBOTT-10P-163-0682575-00

PATIENT
  Sex: Female
  Weight: 65.83 kg

DRUGS (5)
  1. CYMBALTA [Concomitant]
     Indication: FIBROMYALGIA
  2. HUMIRA [Suspect]
     Indication: COLITIS ULCERATIVE
     Dates: start: 20100907, end: 20100907
  3. HUMIRA [Suspect]
     Dates: start: 20101005
  4. HUMIRA [Suspect]
     Dates: start: 20100921, end: 20100921
  5. NORCO [Concomitant]
     Indication: PAIN

REACTIONS (4)
  - ABDOMINAL PAIN UPPER [None]
  - FATIGUE [None]
  - NIGHT SWEATS [None]
  - MOBILITY DECREASED [None]
